FAERS Safety Report 7825506-4 (Version None)
Quarter: 2011Q4

REPORT INFORMATION
  Report Type: 
  Country: None (occurrence: None)
  Receive Date: 20111017
  Receipt Date: 20110930
  Transmission Date: 20120403
  Serious: Yes (Other)
  Sender: FDA-Public Use
  Company Number: 7086476

PATIENT
  Age: 63 Year
  Sex: Female

DRUGS (3)
  1. LEVOTHYROXINE SODIUM [Suspect]
     Indication: PRODUCT USED FOR UNKNOWN INDICATION
  2. HYDROCHLOROTHIAZIDE [Concomitant]
  3. SUNITINIB MALATE [Suspect]
     Indication: RENAL CANCER RECURRENT
     Dosage: 50 MG DAILY (50 MG,4 WEEKS ON 2 WEEKS OFF SCHEDULE) ; 37.5 MG
     Dates: start: 20060101

REACTIONS (3)
  - GANGRENE [None]
  - LEUKOCYTOCLASTIC VASCULITIS [None]
  - TOXICITY TO VARIOUS AGENTS [None]
